FAERS Safety Report 4348733-X (Version None)
Quarter: 2004Q2

REPORT INFORMATION
  Report Type: 
  Country: None (occurrence: None)
  Receive Date: 20040427
  Receipt Date: 20031124
  Transmission Date: 20050107
  Serious: No
  Sender: FDA-Public Use
  Company Number: US-MERCK-0311USA02755

PATIENT
  Sex: Male

DRUGS (5)
  1. [THERAPY UNSPECIFIED] [Concomitant]
     Indication: STEROID THERAPY
     Route: 048
     Dates: start: 20040101
  2. [THERAPY UNSPECIFIED] [Concomitant]
     Indication: ASTHMA
     Route: 048
     Dates: start: 20040101
  3. ALBUTEROL [Concomitant]
     Route: 055
  4. ADVAIR DISKUS 100/50 [Concomitant]
     Route: 055
  5. SINGULAIR [Suspect]
     Route: 048

REACTIONS (1)
  - LUNG INFILTRATION [None]
